FAERS Safety Report 5424157-9 (Version None)
Quarter: 2007Q3

REPORT INFORMATION
  Report Type: 
  Country: None (occurrence: None)
  Receive Date: 20070724
  Receipt Date: 20070618
  Transmission Date: 20080115
  Serious: Yes (Other)
  Sender: FDA-Public Use
  Company Number: ACETADOTE_028

PATIENT
  Age: 19 Year
  Sex: Female
  Weight: 71 kg

DRUGS (1)
  1. ACETADOTE [Suspect]
     Indication: OVERDOSE
     Dosage: 7.2G, ONE DOSE, IV
     Route: 042
     Dates: start: 20070619

REACTIONS (1)
  - MEDICATION ERROR [None]
